FAERS Safety Report 22361010 (Version 6)
Quarter: 2023Q4

REPORT INFORMATION
  Report Type: Spontaneous
  Country: US (occurrence: US)
  Receive Date: 20230524
  Receipt Date: 20231211
  Transmission Date: 20240110
  Serious: No
  Sender: FDA-Public Use
  Company Number: US-PFIZER INC-PV202300080891

PATIENT
  Age: 82 Year
  Sex: Female
  Weight: 47.166 kg

DRUGS (2)
  1. BRAFTOVI [Suspect]
     Active Substance: ENCORAFENIB
     Indication: Colon cancer metastatic
     Dosage: 300 MG, 1X/DAY (4 CAPSULES(300MG) BY MOUTH 1(ONE) TIME EACH DAY FOR 28 DAYS)
     Route: 048
  2. BRAFTOVI [Suspect]
     Active Substance: ENCORAFENIB
     Indication: Bone density abnormal

REACTIONS (1)
  - Pain in extremity [Unknown]
